FAERS Safety Report 22593064 (Version 2)
Quarter: 2024Q2

REPORT INFORMATION
  Report Type: Report from Study
  Country: US (occurrence: US)
  Receive Date: 20230613
  Receipt Date: 20240415
  Transmission Date: 20240716
  Serious: Yes (Hospitalization, Other)
  Sender: FDA-Public Use
  Company Number: US-ABBVIE-4315403

PATIENT
  Age: 70 Year
  Sex: Male
  Weight: 84.821 kg

DRUGS (2)
  1. IMBRUVICA [Suspect]
     Active Substance: IBRUTINIB
     Indication: Chronic lymphocytic leukaemia
     Dosage: FORM STRENGTH: 420 MG
     Route: 048
     Dates: start: 20200201
  2. IMBRUVICA [Suspect]
     Active Substance: IBRUTINIB
     Indication: Chronic lymphocytic leukaemia
     Dosage: THERAPY END DATE: 2020/FORM STRENGTH: 420 MG
     Route: 048
     Dates: start: 202001

REACTIONS (6)
  - Meniscus removal [Unknown]
  - Staphylococcal infection [Not Recovered/Not Resolved]
  - Aspiration joint [Unknown]
  - Unevaluable event [Unknown]
  - Arthritis [Unknown]
  - Knee operation [Unknown]

NARRATIVE: CASE EVENT DATE: 20200220
